FAERS Safety Report 7484905-3 (Version None)
Quarter: 2011Q2

REPORT INFORMATION
  Report Type: 
  Country: None (occurrence: None)
  Receive Date: 20110517
  Receipt Date: 20110510
  Transmission Date: 20111010
  Serious: Yes (Other)
  Sender: FDA-Public Use
  Company Number: A0927556A

PATIENT
  Sex: Female

DRUGS (1)
  1. VENTOLIN [Suspect]
     Dosage: 90MCG UNKNOWN
     Route: 065
     Dates: start: 20100527

REACTIONS (2)
  - PNEUMONIA [None]
  - DYSPNOEA [None]
